FAERS Safety Report 9749222 (Version 1)
Quarter: 2013Q4

REPORT INFORMATION
  Report Type: Spontaneous
  Country: US (occurrence: US)
  Receive Date: 20131212
  Receipt Date: 20131212
  Transmission Date: 20140711
  Serious: No
  Sender: FDA-Public Use
  Company Number: US-INCYTE CORPORATION-2013IN002466

PATIENT
  Age: 86 Year
  Sex: Male

DRUGS (5)
  1. JAKAFI [Suspect]
     Indication: MYELOFIBROSIS
     Dosage: 10 MG, BID
     Route: 048
     Dates: start: 201303
  2. SOTALOL [Concomitant]
  3. AMITRIPTYLINE [Concomitant]
  4. BABY ASPIRIN [Concomitant]
  5. CARDURA [Concomitant]

REACTIONS (1)
  - Constipation [Unknown]
